FAERS Safety Report 4669361-2 (Version None)
Quarter: 2005Q2

REPORT INFORMATION
  Report Type: 
  Country: None (occurrence: None)
  Receive Date: 20050519
  Receipt Date: 20050506
  Transmission Date: 20051028
  Serious: Yes (Hospitalization)
  Sender: FDA-Public Use
  Company Number: HQWYE188322APR05

PATIENT
  Age: 67 Year
  Sex: Male

DRUGS (8)
  1. AMIODARONE (AMIODARONE, TABLET) [Suspect]
     Indication: ATRIAL FLUTTER
     Dosage: SEE IMAGE
     Route: 048
     Dates: start: 20021101, end: 20030401
  2. AMIODARONE (AMIODARONE, TABLET) [Suspect]
     Indication: ATRIAL FLUTTER
     Dosage: SEE IMAGE
     Route: 048
     Dates: start: 20030401, end: 20030401
  3. AMIODARONE (AMIODARONE, TABLET) [Suspect]
     Indication: ATRIAL FLUTTER
     Dosage: SEE IMAGE
     Route: 048
     Dates: start: 20030401
  4. AMIODARONE HCL [Suspect]
     Indication: ATRIAL FLUTTER
     Dosage: SEE IMAGE
     Route: 042
     Dates: start: 20030422, end: 20030401
  5. AMIODARONE HCL [Suspect]
     Indication: ATRIOVENTRICULAR BLOCK
     Dosage: SEE IMAGE
     Route: 042
     Dates: start: 20030422, end: 20030401
  6. AMIODARONE HCL [Suspect]
     Indication: ATRIAL FLUTTER
     Dosage: SEE IMAGE
     Route: 042
     Dates: start: 20030407, end: 20030412
  7. AMIODARONE HCL [Suspect]
     Indication: ATRIOVENTRICULAR BLOCK
     Dosage: SEE IMAGE
     Route: 042
     Dates: start: 20030407, end: 20030412
  8. BISOPROLOL ^STADA^ (BISOPROLOL) [Suspect]
     Indication: ATRIAL FLUTTER
     Dosage: VARYING DOSE REGIMEN
     Route: 048
     Dates: start: 20021101

REACTIONS (6)
  - ARRHYTHMIA SUPRAVENTRICULAR [None]
  - ATRIAL FLUTTER [None]
  - ATRIAL TACHYCARDIA [None]
  - ATRIOVENTRICULAR BLOCK COMPLETE [None]
  - DRUG INEFFECTIVE [None]
  - PALPITATIONS [None]
